FAERS Safety Report 9514815 (Version 1)
Quarter: 2013Q1

REPORT INFORMATION
  Report Type: Spontaneous
  Country: US (occurrence: None)
  Receive Date: 20130305
  Receipt Date: 20130305
  Transmission Date: 20140127
  Serious: Yes (Other)
  Sender: FDA-Public Use
  Company Number: 163-21880-12112036

PATIENT
  Age: 67 Year
  Sex: Male

DRUGS (11)
  1. REVLIMID [Suspect]
     Indication: PLASMA CELL MYELOMA
     Route: 048
     Dates: start: 20110304
  2. ACYCLOVIR (ACICLOVIR) (CAPSULES) [Concomitant]
  3. ADVAIR DISKUS (SERETIDE MITE) [Concomitant]
  4. CALCIUM (CALCIUM) (TABLETS) [Concomitant]
  5. CARVEDILOL (CARVEDILOL) [Concomitant]
  6. DIOVAN (VALSARTAN) (TABLETS) [Concomitant]
  7. EPOGEN (EPOETIN ALFA) [Concomitant]
  8. FOLIC ACID (FOLIC ACID) (TABLETS) [Concomitant]
  9. HYDRALAZINE HCL (HYDRALAZINE HYDROCHLORIDE) [Concomitant]
  10. IRON DEXTRAN COMPLEX (IRON DEXTRAN) [Concomitant]
  11. NEPHROCAPS QT (NEPHROCAPS) [Concomitant]

REACTIONS (1)
  - Gastrointestinal haemorrhage [None]
